FAERS Safety Report 5573125-5 (Version None)
Quarter: 2007Q4

REPORT INFORMATION
  Report Type: 
  Country: None (occurrence: None)
  Receive Date: 20071220
  Receipt Date: 20071220
  Transmission Date: 20080405
  Serious: Yes (Hospitalization)
  Sender: FDA-Public Use
  Company Number: None

PATIENT
  Age: 62 Year
  Sex: Male

DRUGS (2)
  1. ASPIRIN [Suspect]
     Indication: CARDIOVASCULAR EVENT PROPHYLAXIS
     Dosage: 325MG   BID  PO
     Route: 048
     Dates: start: 20051020, end: 20071020
  2. NAPROXEN [Suspect]
     Indication: PAIN
     Dosage: 500MG  BID  PO
     Route: 048
     Dates: start: 20051020, end: 20071020

REACTIONS (1)
  - GASTRIC HAEMORRHAGE [None]
